FAERS Safety Report 16908038 (Version 1)
Quarter: 2019Q4

REPORT INFORMATION
  Report Type: Spontaneous
  Country: FR (occurrence: FR)
  Receive Date: 20191011
  Receipt Date: 20191011
  Transmission Date: 20200122
  Serious: Yes (Hospitalization)
  Sender: FDA-Public Use
  Company Number: FR-TEVA-2019-FR-1120084

PATIENT
  Age: 79 Year
  Sex: Female

DRUGS (2)
  1. VORICONAZOLE. [Suspect]
     Active Substance: VORICONAZOLE
     Indication: INFECTION
     Route: 042
     Dates: start: 20190607
  2. MEROPENEM ANHYDRE [Suspect]
     Active Substance: MEROPENEM
     Indication: INFECTION
     Route: 042
     Dates: start: 20190826, end: 20190829

REACTIONS (1)
  - Renal failure [Not Recovered/Not Resolved]

NARRATIVE: CASE EVENT DATE: 20190829
